FAERS Safety Report 22935565 (Version 6)
Quarter: 2025Q1

REPORT INFORMATION
  Report Type: Report from Study
  Country: US (occurrence: US)
  Receive Date: 20230912
  Receipt Date: 20250314
  Transmission Date: 20250409
  Serious: Yes (Hospitalization)
  Sender: OTSUKA
  Company Number: US-OTSUKA-2023_012690

PATIENT
  Age: 63 Year
  Sex: Female

DRUGS (24)
  1. TOLVAPTAN [Suspect]
     Active Substance: TOLVAPTAN
     Indication: Congenital cystic kidney disease
     Route: 048
     Dates: start: 20211008
  2. TOLVAPTAN [Suspect]
     Active Substance: TOLVAPTAN
     Route: 048
     Dates: start: 20211008
  3. TOLVAPTAN [Suspect]
     Active Substance: TOLVAPTAN
     Route: 048
     Dates: start: 20210420
  4. TOLVAPTAN [Suspect]
     Active Substance: TOLVAPTAN
     Route: 048
     Dates: start: 20210420
  5. TOLVAPTAN [Suspect]
     Active Substance: TOLVAPTAN
     Dosage: 1 DF, BID (15 MG 1 TABLET TWICE A DAY)
     Route: 048
  6. AMLODIPINE [Concomitant]
     Active Substance: AMLODIPINE BESYLATE
     Indication: Product used for unknown indication
     Dosage: 5 MG, QD
     Route: 048
  7. AMPICILLIN [Concomitant]
     Active Substance: AMPICILLIN
     Indication: Product used for unknown indication
     Route: 065
  8. HYDROCODONE [Concomitant]
     Active Substance: HYDROCODONE
     Indication: Product used for unknown indication
     Route: 065
  9. RAYALDEE [Concomitant]
     Active Substance: CALCIFEDIOL
     Indication: Product used for unknown indication
     Route: 065
  10. ERGOCALCIFEROL [Concomitant]
     Active Substance: ERGOCALCIFEROL
     Indication: Product used for unknown indication
     Dosage: 1.25 MG, QW
     Route: 048
  11. ATORVASTATIN [Concomitant]
     Active Substance: ATORVASTATIN
     Indication: Product used for unknown indication
     Dosage: 1 DF, QD (FOR 30 DAYS)
     Route: 048
  12. CEFTRIAXONE SODIUM [Concomitant]
     Active Substance: CEFTRIAXONE SODIUM
     Indication: Product used for unknown indication
     Dosage: 1 G, BID
     Route: 042
  13. NOZIN [Concomitant]
     Indication: Product used for unknown indication
     Route: 061
  14. HUMALOG [Concomitant]
     Active Substance: INSULIN LISPRO
     Indication: Product used for unknown indication
     Route: 058
  15. VANCOMYCIN [Concomitant]
     Active Substance: VANCOMYCIN
     Indication: Product used for unknown indication
     Route: 065
  16. SODIUM CHLORIDE [Concomitant]
     Active Substance: SODIUM CHLORIDE
     Indication: Product used for unknown indication
     Dosage: UNK
     Route: 042
  17. ACETAMINOPHEN [Concomitant]
     Active Substance: ACETAMINOPHEN
     Indication: Product used for unknown indication
     Route: 048
  18. MORPHINE [Concomitant]
     Active Substance: MORPHINE
     Indication: Product used for unknown indication
     Dosage: 4 MG, Q3HR
     Route: 042
  19. ONDANSETRON [Concomitant]
     Active Substance: ONDANSETRON
     Indication: Product used for unknown indication
     Route: 042
  20. POTASSIUM BICARBONATE [Concomitant]
     Active Substance: POTASSIUM BICARBONATE
     Indication: Product used for unknown indication
     Dosage: 1 DF, Q3HR
     Route: 048
  21. POTASSIUM CHLORIDE [Concomitant]
     Active Substance: POTASSIUM CHLORIDE
     Indication: Product used for unknown indication
     Dosage: 1 DF, Q3HR
     Route: 048
  22. POTASSIUM PHOSPHATES [Concomitant]
     Active Substance: POTASSIUM PHOSPHATE, DIBASIC\POTASSIUM PHOSPHATE, MONOBASIC
     Indication: Product used for unknown indication
     Route: 042
  23. POTASSIUM PHOSPHATE MONOBASIC;SODIUM PHOSPHATE [Concomitant]
     Indication: Product used for unknown indication
     Dosage: UNK, Q4HR
     Route: 048
  24. POTASSIUM BIPHOSPHATE [Concomitant]
     Indication: Product used for unknown indication
     Dosage: 133 ML, QD
     Route: 054

REACTIONS (15)
  - Renal cyst [Unknown]
  - Hepatic cyst [Unknown]
  - Sepsis [Not Recovered/Not Resolved]
  - Biliary dilatation [Unknown]
  - Uterine leiomyoma [Unknown]
  - Renal disorder [Not Recovered/Not Resolved]
  - Acute kidney injury [Unknown]
  - Hyponatraemia [Recovered/Resolved]
  - Viral infection [Unknown]
  - Urinary tract infection [Not Recovered/Not Resolved]
  - Haematuria [Unknown]
  - Weight decreased [Unknown]
  - Abdominal pain [Unknown]
  - Decreased appetite [Unknown]
  - Product dose omission issue [Not Recovered/Not Resolved]

NARRATIVE: CASE EVENT DATE: 20250124
